FAERS Safety Report 11198237 (Version 6)
Quarter: 2015Q4

REPORT INFORMATION
  Report Type: Spontaneous
  Country: IT (occurrence: IT)
  Receive Date: 20150618
  Receipt Date: 20151118
  Transmission Date: 20160304
  Serious: Yes (Hospitalization)
  Sender: FDA-Public Use
  Company Number: IT-AMGEN-ITASP2015050060

PATIENT
  Age: 73 Year
  Sex: Male
  Weight: 80 kg

DRUGS (5)
  1. VECTIBIX [Suspect]
     Active Substance: PANITUMUMAB
     Dosage: UNK
     Route: 042
  2. FOLINIC ACID [Concomitant]
     Active Substance: LEUCOVORIN
     Indication: COLON CANCER
     Dosage: UNK
  3. OXALIPLATIN SUN [Suspect]
     Active Substance: OXALIPLATIN
     Indication: COLON CANCER
     Dosage: 85 MG/M2 OF BODY SURFACE, CYCLICAL
     Route: 042
     Dates: start: 20150414
  4. VECTIBIX [Suspect]
     Active Substance: PANITUMUMAB
     Indication: COLON CANCER
     Dosage: 6 MG/KG OF BODY WEIGHT, CYCLIC
     Route: 042
     Dates: start: 20150414
  5. 5 FU [Concomitant]
     Active Substance: FLUOROURACIL
     Indication: COLON CANCER
     Dosage: UNK

REACTIONS (15)
  - Orthostatic hypotension [Recovered/Resolved]
  - Pruritus [Not Recovered/Not Resolved]
  - Dermatitis acneiform [Recovering/Resolving]
  - Erythema [Not Recovered/Not Resolved]
  - Fall [Recovered/Resolved]
  - Ocular hyperaemia [Recovering/Resolving]
  - Micturition urgency [Recovered/Resolved]
  - Rash generalised [Not Recovered/Not Resolved]
  - Skin discolouration [Recovered/Resolved]
  - Skin fissures [Not Recovered/Not Resolved]
  - Syncope [Unknown]
  - Confusional state [Recovering/Resolving]
  - Burning sensation [Recovering/Resolving]
  - Drug intolerance [Unknown]
  - Malaise [Unknown]

NARRATIVE: CASE EVENT DATE: 2015
